FAERS Safety Report 24468243 (Version 2)
Quarter: 2024Q4

REPORT INFORMATION
  Report Type: Other
  Country: GB (occurrence: GB)
  Receive Date: 20241018
  Receipt Date: 20241022
  Transmission Date: 20250115
  Serious: Yes (Life-Threatening, Hospitalization, Other)
  Sender: GLENMARK
  Company Number: None

PATIENT

DRUGS (2)
  1. SOLIFENACIN SUCCINATE [Suspect]
     Active Substance: SOLIFENACIN SUCCINATE
     Indication: Enuresis
     Dosage: 5 MILLIGRAM, OD
     Route: 065
     Dates: start: 20240710
  2. SOLIFENACIN SUCCINATE [Suspect]
     Active Substance: SOLIFENACIN SUCCINATE
     Dosage: 10 MILLIGRAM, OD
     Route: 065
     Dates: end: 20240825

REACTIONS (2)
  - Atrioventricular block complete [Recovered/Resolved]
  - Fall [Unknown]

NARRATIVE: CASE EVENT DATE: 20240825
